FAERS Safety Report 11026558 (Version 1)
Quarter: 2015Q2

REPORT INFORMATION
  Report Type: Spontaneous
  Country: US (occurrence: US)
  Receive Date: 20150414
  Receipt Date: 20150414
  Transmission Date: 20150821
  Serious: Yes (Other)
  Sender: FDA-Public Use
  Company Number: US-PFIZER INC-2015123994

PATIENT
  Sex: Male
  Weight: 82 kg

DRUGS (1)
  1. VIAGRA [Suspect]
     Active Substance: SILDENAFIL CITRATE
     Indication: GENITAL DISORDER MALE
     Dosage: UNK, 2X/DAY
     Dates: start: 201504

REACTIONS (3)
  - Acquired phimosis [Unknown]
  - Product use issue [Unknown]
  - Hyperhidrosis [Unknown]

NARRATIVE: CASE EVENT DATE: 201504
